FAERS Safety Report 17088311 (Version 1)
Quarter: 2019Q4

REPORT INFORMATION
  Report Type: Spontaneous
  Country: US (occurrence: US)
  Receive Date: 20191128
  Receipt Date: 20191128
  Transmission Date: 20200122
  Serious: Yes (Other)
  Sender: FDA-Public Use
  Company Number: US-SA-2019SA330432

PATIENT
  Sex: Female

DRUGS (1)
  1. PRALUENT [Suspect]
     Active Substance: ALIROCUMAB
     Indication: ROUTINE HEALTH MAINTENANCE
     Dosage: 75 MG, EVERY 14 DAYS
     Route: 058

REACTIONS (1)
  - Cerebrovascular accident [Not Recovered/Not Resolved]
